FAERS Safety Report 4660033-7 (Version None)
Quarter: 2005Q2

REPORT INFORMATION
  Report Type: 
  Country: None (occurrence: None)
  Receive Date: 20050512
  Receipt Date: 20050429
  Transmission Date: 20051028
  Serious: Yes (Hospitalization)
  Sender: FDA-Public Use
  Company Number: FR-BOEHRINGER INGELHEIM PHARMACEUTICALS, INC.-2005-FF-00313FF

PATIENT
  Age: 27 Year
  Sex: Female

DRUGS (8)
  1. JOSIR [Suspect]
     Route: 048
     Dates: start: 20050217, end: 20050226
  2. KEPPRA [Concomitant]
     Dosage: TWO TA DAILY
     Route: 048
     Dates: start: 20050206, end: 20050212
  3. KEPPRA [Concomitant]
     Dosage: 4 TA DAILY
     Route: 048
     Dates: start: 20050213, end: 20050217
  4. KEPPRA [Concomitant]
     Dosage: 6 TA DAILY
     Route: 048
     Dates: start: 20050218, end: 20050226
  5. XANAX [Concomitant]
     Route: 048
     Dates: start: 20050203
  6. LOVENOX [Concomitant]
     Route: 058
  7. MICROPAKINE [Concomitant]
     Route: 048
     Dates: start: 20050121
  8. FUMAFER [Concomitant]
     Route: 048
     Dates: start: 20050131

REACTIONS (2)
  - LEUKOPENIA [None]
  - NEUTROPENIA [None]
